FAERS Safety Report 15278920 (Version 3)
Quarter: 2019Q1

REPORT INFORMATION
  Report Type: Spontaneous
  Country: JP (occurrence: JP)
  Receive Date: 20180815
  Receipt Date: 20190102
  Transmission Date: 20190417
  Serious: Yes (Hospitalization, Other)
  Sender: FDA-Public Use
  Company Number: JP-ROCHE-2170285

PATIENT
  Age: 63 Year
  Sex: Female
  Weight: 43 kg

DRUGS (2)
  1. ELPLAT [Concomitant]
     Active Substance: OXALIPLATIN
     Indication: COLON CANCER
     Dosage: DOSAGE IS UNCERTAIN.
     Route: 041
     Dates: start: 20180411, end: 20180523
  2. XELODA [Suspect]
     Active Substance: CAPECITABINE
     Indication: COLON CANCER
     Route: 048
     Dates: start: 20180411, end: 20180606

REACTIONS (12)
  - Palmar-plantar erythrodysaesthesia syndrome [Unknown]
  - Diabetic ketoacidosis [Unknown]
  - Duodenal ulcer [Recovered/Resolved]
  - Gastrointestinal oedema [Recovered/Resolved]
  - Neuropathy peripheral [Unknown]
  - Enterocolitis [Unknown]
  - Malaise [Unknown]
  - Decreased appetite [Unknown]
  - Ileus paralytic [Recovered/Resolved]
  - Diarrhoea [Recovering/Resolving]
  - Constipation [Unknown]
  - Decreased appetite [Recovering/Resolving]

NARRATIVE: CASE EVENT DATE: 20180411
